FAERS Safety Report 6192607-9 (Version None)
Quarter: 2009Q2

REPORT INFORMATION
  Report Type: 
  Country: None (occurrence: None)
  Receive Date: 20090518
  Receipt Date: 20090512
  Transmission Date: 20091009
  Serious: Yes (Hospitalization)
  Sender: FDA-Public Use
  Company Number: DE-JNJFOC-20090502550

PATIENT
  Age: 64 Year
  Sex: Female

DRUGS (9)
  1. TAVANIC [Suspect]
     Indication: URINARY TRACT INFECTION
     Route: 048
  2. CEFTRIAXONE [Suspect]
     Indication: URINARY TRACT INFECTION
     Route: 042
  3. AMLODIPINE [Concomitant]
     Indication: HYPERTENSION
     Route: 048
  4. ASPIRIN [Concomitant]
     Indication: CEREBRAL INFARCTION
     Route: 048
  5. BISOPROLOL RATIOPHARM [Concomitant]
     Indication: HYPERTENSION
     Route: 048
  6. LOCOL [Concomitant]
     Indication: CEREBRAL INFARCTION
     Route: 048
  7. PENICILLIN [Concomitant]
     Indication: ERYSIPELAS
     Route: 042
  8. RAMIPRIL [Concomitant]
     Indication: HYPERTENSION
     Route: 048
  9. TORSEMIDE [Concomitant]
     Indication: HYPERTENSION
     Route: 048

REACTIONS (3)
  - C-REACTIVE PROTEIN INCREASED [None]
  - GASTROENTERITIS CLOSTRIDIAL [None]
  - RENAL FAILURE ACUTE [None]
